FAERS Safety Report 6229930-5 (Version None)
Quarter: 2009Q2

REPORT INFORMATION
  Report Type: 
  Country: None (occurrence: None)
  Receive Date: 20090615
  Receipt Date: 20090605
  Transmission Date: 20091009
  Serious: Yes (Disabling)
  Sender: FDA-Public Use
  Company Number: US-ELI_LILLY_AND_COMPANY-US200906001538

PATIENT
  Sex: Female

DRUGS (4)
  1. HUMALOG [Suspect]
  2. HUMALOG [Suspect]
  3. GLUCOPHAGE [Concomitant]
  4. LANTUS [Concomitant]

REACTIONS (6)
  - ANGER [None]
  - BLOOD GLUCOSE INCREASED [None]
  - DISABILITY [None]
  - FEAR [None]
  - INCORRECT DOSE ADMINISTERED [None]
  - WRONG TECHNIQUE IN DRUG USAGE PROCESS [None]
